FAERS Safety Report 16103475 (Version 3)
Quarter: 2024Q3

REPORT INFORMATION
  Report Type: Spontaneous
  Country: PT (occurrence: PT)
  Receive Date: 20190322
  Receipt Date: 20240722
  Transmission Date: 20241016
  Serious: Yes (Other)
  Sender: CELLTRION
  Company Number: PT-CELLTRION INC.-2019PT019530

PATIENT

DRUGS (27)
  1. HERCEPTIN [Suspect]
     Active Substance: TRASTUZUMAB
     Indication: HER2 positive breast cancer
  2. TRASTUZUMAB [Suspect]
     Active Substance: TRASTUZUMAB
     Indication: HER2 positive breast cancer
     Dosage: 600 MG, 3 WEEKS, MOST RECENT DOSE PRIOR TO THE EVENT: 24/OCT/2017
     Route: 042
     Dates: start: 20171024, end: 20180823
  3. DENOSUMAB [Suspect]
     Active Substance: DENOSUMAB
     Indication: HER2 positive breast cancer
     Dosage: 120 MG EVERY 3 WEEKS
     Route: 058
     Dates: start: 20180509
  4. DOCETAXEL [Suspect]
     Active Substance: DOCETAXEL\DOCETAXEL ANHYDROUS
     Indication: HER2 positive breast cancer
     Dosage: EVERY 3 WEEKS
     Route: 042
     Dates: start: 20171024, end: 20180130
  5. LETROZOLE [Suspect]
     Active Substance: LETROZOLE
     Indication: HER2 positive breast cancer
     Dosage: 2.5 MG, QD
     Route: 048
     Dates: start: 20180417, end: 20180906
  6. PERTUZUMAB [Suspect]
     Active Substance: PERTUZUMAB
     Indication: HER2 positive breast cancer
     Dosage: 420 MG EVERY 3 WEEKS, MOST RECENT DOSE ON 24 OCT 2017, 27 MAR 2018
     Route: 042
     Dates: start: 20171024, end: 20180130
  7. OMEPRAZOLE [Concomitant]
     Active Substance: OMEPRAZOLE
  8. BUDESONIDE [Concomitant]
     Active Substance: BUDESONIDE
  9. METFORMIN [Concomitant]
     Active Substance: METFORMIN HYDROCHLORIDE
  10. ESCITALOPRAM [Concomitant]
     Active Substance: ESCITALOPRAM OXALATE
  11. MORPHINE [Concomitant]
     Active Substance: MORPHINE
  12. LISINOPRIL [Concomitant]
     Active Substance: LISINOPRIL
  13. BUPRENORPHINE [Concomitant]
     Active Substance: BUPRENORPHINE
     Dosage: UNK
     Dates: start: 20180108
  14. ACETAMINOPHEN [Concomitant]
     Active Substance: ACETAMINOPHEN
     Dosage: UNK
     Dates: start: 20180108
  15. ACETAMINOPHEN [Concomitant]
     Active Substance: ACETAMINOPHEN
     Dosage: UNK
  16. NAPROXEN [Concomitant]
     Active Substance: NAPROXEN
     Dosage: UNK
     Dates: start: 20180706
  17. MONTELUKAST [Concomitant]
     Active Substance: MONTELUKAST SODIUM
  18. ROSUVASTATIN [Concomitant]
     Active Substance: ROSUVASTATIN
  19. DIAZEPAM [Concomitant]
     Active Substance: DIAZEPAM
  20. THIOCOLCHICOSIDE [Concomitant]
     Active Substance: THIOCOLCHICOSIDE
     Dosage: UNK
     Dates: start: 20180108
  21. THIOCOLCHICOSIDE [Concomitant]
     Active Substance: THIOCOLCHICOSIDE
     Dosage: ONGOING = CHECKED
     Dates: start: 20180706
  22. FORMOTEROL [Concomitant]
     Active Substance: FORMOTEROL
  23. BILASTINE [Concomitant]
     Active Substance: BILASTINE
  24. INSULIN PORK\INSULIN PURIFIED PORK [Concomitant]
     Active Substance: INSULIN PORK\INSULIN PURIFIED PORK
  25. CEFUROXIME [Concomitant]
     Active Substance: CEFUROXIME
     Indication: Pyelonephritis
     Dosage: UNK
     Dates: start: 20180718
  26. ZOLPIDEM [Concomitant]
     Active Substance: ZOLPIDEM TARTRATE
  27. ENOXAPARIN [Concomitant]
     Active Substance: ENOXAPARIN
     Dosage: ONGOING = CHECKED

REACTIONS (2)
  - Cholestasis [Recovered/Resolved]
  - Diarrhoea [Recovered/Resolved]

NARRATIVE: CASE EVENT DATE: 20180130
